FAERS Safety Report 4477392-0 (Version None)
Quarter: 2004Q4

REPORT INFORMATION
  Report Type: 
  Country: None (occurrence: None)
  Receive Date: 20041018
  Receipt Date: 20041007
  Transmission Date: 20050328
  Serious: Yes (Other)
  Sender: FDA-Public Use
  Company Number: DE-BRISTOL-MYERS SQUIBB COMPANY-12729653

PATIENT
  Age: 30 Year
  Sex: Female

DRUGS (5)
  1. IFOSFAMIDE [Suspect]
     Indication: EWING'S SARCOMA
  2. ETOPOSIDE [Concomitant]
     Indication: EWING'S SARCOMA
  3. DOXORUBICIN HCL [Concomitant]
     Indication: EWING'S SARCOMA
  4. VINCRISTINE [Concomitant]
     Indication: EWING'S SARCOMA
  5. RADIATION THERAPY [Concomitant]
     Indication: EWING'S SARCOMA

REACTIONS (1)
  - ENCEPHALOPATHY [None]
